FAERS Safety Report 18328708 (Version 1)
Quarter: 2020Q3

REPORT INFORMATION
  Report Type: Spontaneous
  Country: US (occurrence: US)
  Receive Date: 20200929
  Receipt Date: 20200929
  Transmission Date: 20201103
  Serious: Yes (Disabling)
  Sender: FDA-Public Use
  Company Number: None

PATIENT
  Age: 16 Year
  Sex: Male
  Weight: 72 kg

DRUGS (4)
  1. COLLOGEN [Concomitant]
  2. ADVIL [Concomitant]
     Active Substance: IBUPROFEN
  3. TUMERIC [Concomitant]
     Active Substance: HERBALS\TURMERIC
  4. ISOTRETINOIN. [Suspect]
     Active Substance: ISOTRETINOIN
     Indication: ACNE
     Dosage: ?          QUANTITY:1 TABLET(S);?
     Route: 048

REACTIONS (12)
  - Gastrointestinal disorder [None]
  - Retinal tear [None]
  - Feeling abnormal [None]
  - Flushing [None]
  - Tinnitus [None]
  - Depressed mood [None]
  - Fatigue [None]
  - Abdominal pain upper [None]
  - Hot flush [None]
  - Dry eye [None]
  - Back pain [None]
  - Arthralgia [None]

NARRATIVE: CASE EVENT DATE: 20170208
